FAERS Safety Report 11009418 (Version 1)
Quarter: 2015Q2

REPORT INFORMATION
  Report Type: Spontaneous
  Country: US (occurrence: None)
  Receive Date: 20150409
  Receipt Date: 20150409
  Transmission Date: 20150821
  Serious: Yes (Other)
  Sender: FDA-Public Use
  Company Number: None

PATIENT
  Age: 47 Year
  Sex: Female

DRUGS (1)
  1. FETZIMA [Suspect]
     Active Substance: LEVOMILNACIPRAN HYDROCHLORIDE
     Indication: MAJOR DEPRESSION
     Dosage: 1 PILL, ONCE DAILY, TAKEN BY MOUTH
     Route: 048
     Dates: start: 20150326, end: 20150406

REACTIONS (8)
  - Rash generalised [None]
  - Palpitations [None]
  - Urticaria [None]
  - Heart rate increased [None]
  - Neck pain [None]
  - Chest pain [None]
  - Pain in jaw [None]
  - Drug ineffective [None]

NARRATIVE: CASE EVENT DATE: 20150408
